FAERS Safety Report 25852400 (Version 1)
Quarter: 2025Q3

REPORT INFORMATION
  Report Type: Spontaneous
  Country: US (occurrence: US)
  Receive Date: 20250926
  Receipt Date: 20250926
  Transmission Date: 20251021
  Serious: No
  Sender: PFIZER
  Company Number: US-PFIZER INC-202500190101

PATIENT
  Sex: Male

DRUGS (2)
  1. MEDROL [Suspect]
     Active Substance: METHYLPREDNISOLONE
     Indication: Urticaria
  2. MEDROL [Suspect]
     Active Substance: METHYLPREDNISOLONE
     Indication: Pruritus

REACTIONS (1)
  - Drug ineffective [Unknown]
